FAERS Safety Report 8367795-6 (Version None)
Quarter: 2012Q2

REPORT INFORMATION
  Report Type: 
  Country: None (occurrence: None)
  Receive Date: 20120517
  Receipt Date: 20120514
  Transmission Date: 20120825
  Serious: Yes (Other)
  Sender: FDA-Public Use
  Company Number: JP-PFIZER INC-2012117795

PATIENT
  Sex: Female

DRUGS (4)
  1. MICARDIS [Suspect]
     Dosage: UNKNOWN
     Route: 048
  2. LIPITOR [Suspect]
     Dosage: UNKNOWN
     Route: 048
  3. NORVASC [Suspect]
     Dosage: UNKNOWN
     Route: 048
  4. ALLOPURINOL [Suspect]
     Dosage: UNKNOWN
     Route: 048

REACTIONS (1)
  - RENAL IMPAIRMENT [None]
